FAERS Safety Report 5134050-7 (Version None)
Quarter: 2006Q4

REPORT INFORMATION
  Report Type: 
  Country: None (occurrence: None)
  Receive Date: 20061019
  Receipt Date: 20061013
  Transmission Date: 20070319
  Serious: Yes (Death, Life-Threatening, Other)
  Sender: FDA-Public Use
  Company Number: 2006S1000121

PATIENT
  Age: 1 Day
  Sex: Male

DRUGS (13)
  1. NITRIC OXIDE [Suspect]
     Indication: LUNG DISORDER
     Dosage: 5 PPM; INH_GAS; INH; CONT INH
     Route: 055
     Dates: start: 20060609, end: 20060613
  2. NITRIC OXIDE [Suspect]
     Indication: PROPHYLAXIS
     Dosage: 5 PPM; INH_GAS; INH; CONT INH
     Route: 055
     Dates: start: 20060609, end: 20060613
  3. SURVANTA [Concomitant]
  4. AMPICILLIN [Concomitant]
  5. AMIKACIN [Concomitant]
  6. DOPAMINE HCL [Concomitant]
  7. ERYTHROPOIETIN (ERYTHROPOIETIN) [Concomitant]
  8. INSULIN (INSULIN) [Concomitant]
  9. IBUPROFEN [Concomitant]
  10. SODIUM BICARBONATE IN PLASTIC CONTAINER [Concomitant]
  11. CAFFEINE (CAFFEINE) [Concomitant]
  12. CAFFEINE (CAFFEINE) [Concomitant]
  13. INSULIN (INSULIN) [Concomitant]

REACTIONS (11)
  - ABDOMINAL DISTENSION [None]
  - ANAEMIA [None]
  - BRADYCARDIA NEONATAL [None]
  - HYPERGLYCAEMIA [None]
  - INTRAVENTRICULAR HAEMORRHAGE NEONATAL [None]
  - METABOLIC ACIDOSIS [None]
  - NEONATAL DISORDER [None]
  - PNEUMOTHORAX [None]
  - PROCEDURAL COMPLICATION [None]
  - PULMONARY INTERSTITIAL EMPHYSEMA SYNDROME [None]
  - THROMBOCYTOPENIA [None]
